FAERS Safety Report 7774946-0 (Version None)
Quarter: 2011Q3

REPORT INFORMATION
  Report Type: 
  Country: None (occurrence: None)
  Receive Date: 20110923
  Receipt Date: 20110729
  Transmission Date: 20111222
  Serious: Yes (Other)
  Sender: FDA-Public Use
  Company Number: PHHY2010DK89609

PATIENT
  Age: 32 Year
  Sex: Female

DRUGS (3)
  1. ACETAMINOPHEN [Suspect]
     Indication: HEADACHE
     Dosage: UNK
  2. TRAMADOL HCL [Suspect]
     Indication: HEADACHE
     Dosage: UNK
  3. MORPHINE [Suspect]
     Indication: HEADACHE
     Dosage: UNK

REACTIONS (4)
  - MIGRAINE [None]
  - DRUG WITHDRAWAL SYNDROME [None]
  - HEADACHE [None]
  - TOXICITY TO VARIOUS AGENTS [None]
